FAERS Safety Report 17638359 (Version 2)
Quarter: 2020Q2

REPORT INFORMATION
  Report Type: Spontaneous
  Country: US (occurrence: US)
  Receive Date: 20200407
  Receipt Date: 20200410
  Transmission Date: 20200713
  Serious: Yes (Other)
  Sender: FDA-Public Use
  Company Number: US-PFIZER INC-2020141257

PATIENT
  Age: 82 Year
  Sex: Female
  Weight: 45 kg

DRUGS (3)
  1. MIDAZOLAM. [Suspect]
     Active Substance: MIDAZOLAM
     Indication: ANAESTHESIA
     Dosage: 2 MG, UNK
  2. ROPIVACAINE HYDROCHLORIDE. [Suspect]
     Active Substance: ROPIVACAINE HYDROCHLORIDE
     Indication: ANAESTHESIA
     Dosage: 20 ML, UNK
  3. CLONIDINE. [Suspect]
     Active Substance: CLONIDINE
     Indication: ANAESTHESIA
     Dosage: 50 KG, UNK

REACTIONS (7)
  - Generalised tonic-clonic seizure [Recovered/Resolved]
  - Ventricular fibrillation [Recovered/Resolved]
  - Loss of consciousness [Recovered/Resolved]
  - Speech disorder [Recovered/Resolved]
  - Toxicity to various agents [Unknown]
  - Drug level increased [Unknown]
  - Incorrect route of product administration [Unknown]
